FAERS Safety Report 10022985 (Version 4)
Quarter: 2015Q3

REPORT INFORMATION
  Report Type: Spontaneous
  Country: US (occurrence: US)
  Receive Date: 20140319
  Receipt Date: 20150706
  Transmission Date: 20151125
  Serious: Yes (Disabling, Other)
  Sender: FDA-Public Use
  Company Number: US-SANOFI-AVENTIS-2012SA003041

PATIENT
  Age: 70 Year
  Sex: Female

DRUGS (21)
  1. DIGOXIN. [Concomitant]
     Active Substance: DIGOXIN
     Dosage: STRENGTH: 125 MCG
     Route: 048
  2. POTASSIUM CHLORIDE. [Concomitant]
     Active Substance: POTASSIUM CHLORIDE
     Route: 048
  3. FELODIPINE. [Concomitant]
     Active Substance: FELODIPINE
     Dosage: STRENGTH: 5 MG
     Route: 048
  4. HUMALOG [Concomitant]
     Active Substance: INSULIN LISPRO
     Dosage: 12 UNITS BREAKFAST, 14 UNITS LUNCH, 16 UNITS SUPPER+ SLIDING SCALE B
  5. FOLIC ACID. [Concomitant]
     Active Substance: FOLIC ACID
     Dosage: STRENGTH: 20 MG
     Route: 048
  6. ASPIRIN. [Concomitant]
     Active Substance: ASPIRIN
  7. PRAVASTATIN SODIUM. [Concomitant]
     Active Substance: PRAVASTATIN SODIUM
     Route: 048
  8. METHOTREXATE [Concomitant]
     Active Substance: METHOTREXATE
     Dosage: STRENGTH: 2.5 MG
     Route: 048
  9. SYSTANE (HYPROMELLOSE 2910 (4000 MPA.S)) [Concomitant]
     Active Substance: HYPROMELLOSE 2910 (4000 MPA.S)
     Dosage: ONE DROP IN EACH EYE THREE TIMES DAILY
  10. LASIX [Concomitant]
     Active Substance: FUROSEMIDE
  11. OMEPRAZOLE. [Concomitant]
     Active Substance: OMEPRAZOLE
  12. CARAFATE [Concomitant]
     Active Substance: SUCRALFATE
  13. LANTUS [Concomitant]
     Active Substance: INSULIN GLARGINE
     Dosage: DOSE:46 UNIT(S)
  14. PANTHENOL/RETINOL/THIAMINE HYDROCHLORIDE/ASCORBIC ACID/ERGOCALCIFEROL/FOLIC ACID/RIBOFLAVIN/NICOTINA [Concomitant]
     Route: 048
  15. MICARDIS [Concomitant]
     Active Substance: TELMISARTAN
     Dosage: STRENGTH: 20 MG
     Route: 048
  16. ALEVE [Concomitant]
     Active Substance: NAPROXEN SODIUM
     Dosage: STRENGTH: 220 MG
     Route: 048
  17. PLAVIX [Suspect]
     Active Substance: CLOPIDOGREL BISULFATE
     Indication: PRODUCT USED FOR UNKNOWN INDICATION
     Route: 048
     Dates: start: 20060826, end: 20100309
  18. ASPIRIN. [Concomitant]
     Active Substance: ASPIRIN
  19. BENICAR [Concomitant]
     Active Substance: OLMESARTAN MEDOXOMIL
     Dosage: STRENGTH: 20MG
     Route: 048
  20. FUROSEMIDE. [Concomitant]
     Active Substance: FUROSEMIDE
     Indication: SWELLING
  21. CITRACAL [Concomitant]
     Active Substance: CALCIUM CITRATE
     Dosage: 315 MG-200
     Route: 048

REACTIONS (14)
  - Multiple injuries [Unknown]
  - Economic problem [Unknown]
  - Pain [Unknown]
  - Physical disability [Unknown]
  - Deformity [Unknown]
  - Haemoptysis [Recovered/Resolved]
  - Loss of employment [Unknown]
  - Gastrointestinal ulcer [Unknown]
  - Social problem [Unknown]
  - Anhedonia [Unknown]
  - Tension [Unknown]
  - Gastrointestinal haemorrhage [Recovered/Resolved]
  - Abdominal pain [Recovered/Resolved]
  - Psychological trauma [Unknown]

NARRATIVE: CASE EVENT DATE: 20100309
